FAERS Safety Report 12782281 (Version 1)
Quarter: 2016Q3

REPORT INFORMATION
  Report Type: Spontaneous
  Country: CI (occurrence: CI)
  Receive Date: 20160927
  Receipt Date: 20160927
  Transmission Date: 20161109
  Serious: Yes (Disabling)
  Sender: FDA-Public Use
  Company Number: CI-009507513-1609CIV011081

PATIENT
  Age: 3 Year
  Sex: Male

DRUGS (1)
  1. BETAMETHASONE. [Suspect]
     Active Substance: BETAMETHASONE
     Indication: ASTHMA
     Dosage: 200 DROPS, ONCE A DAY(NIGHT)
     Route: 048

REACTIONS (2)
  - Pruritus [Recovered/Resolved]
  - Asthenia [Recovered/Resolved]
